FAERS Safety Report 5622315-1 (Version None)
Quarter: 2008Q1

REPORT INFORMATION
  Report Type: 
  Country: None (occurrence: None)
  Receive Date: 20080211
  Receipt Date: 20080201
  Transmission Date: 20080703
  Serious: Yes (Hospitalization)
  Sender: FDA-Public Use
  Company Number: IE-ABBOTT-08P-229-0436238-00

PATIENT
  Sex: Male

DRUGS (5)
  1. HUMIRA [Suspect]
     Indication: CROHN'S DISEASE
     Route: 058
     Dates: start: 20070901
  2. CYCLIZINE [Concomitant]
     Indication: NAUSEA
  3. CYCLIZINE [Concomitant]
     Indication: VOMITING
  4. ENOXATARIN [Concomitant]
     Indication: THROMBOSIS PROPHYLAXIS
  5. BUSCOBAN [Concomitant]
     Indication: DRUG USE FOR UNKNOWN INDICATION

REACTIONS (4)
  - HEPATIC ENZYME INCREASED [None]
  - LUNG DISORDER [None]
  - PNEUMONIA [None]
  - RENAL FAILURE [None]
